FAERS Safety Report 9380403 (Version 2)
Quarter: 2013Q3

REPORT INFORMATION
  Report Type: Spontaneous
  Country: US (occurrence: None)
  Receive Date: 20130628
  Receipt Date: 20130903
  Transmission Date: 20140515
  Serious: Yes (Death, Hospitalization, Other)
  Sender: FDA-Public Use
  Company Number: ACO_24317_2010

PATIENT
  Age: 55 Year
  Sex: Female
  Weight: 45 kg

DRUGS (25)
  1. AMPYRA [Suspect]
     Indication: MULTIPLE SCLEROSIS
     Route: 048
     Dates: end: 20130420
  2. AMPYRA [Suspect]
     Indication: MUSCULAR WEAKNESS
     Route: 048
     Dates: end: 20130420
  3. AMPYRA [Suspect]
     Indication: GAIT DISTURBANCE
     Route: 048
     Dates: end: 20130420
  4. SOLU MEDROL (METHYLPREDNISOLONE SODIUM SUCCINATE) [Concomitant]
  5. XANAX (ALPRAZOLAM) [Concomitant]
  6. HUMIRA (ADALIMUMAB) [Concomitant]
  7. METHOTREXATE (METHOTREXATE) [Concomitant]
  8. FLEXERIL (CYCLOBENZAPRINE HYDROCHLORIDE) [Concomitant]
  9. MECLIZINE (MECLOZINE) [Concomitant]
  10. DURAGESIC (FENTANYL) [Concomitant]
  11. VICODIN (HYDROCODONE BITARTRATE, PARACETAMOL) [Concomitant]
  12. MULTIVITAMIN (VITAMINS NOS) [Concomitant]
  13. CYCLOBENZAPRINE (CYCLOBENZAPRINE HYDROCHLORIDE) [Concomitant]
  14. COLACE [Concomitant]
  15. FERROUS SULFATE (FERROUS SULFATE) [Concomitant]
  16. PROZAC (FLUOXETINE HYDROCHLORIDE) [Concomitant]
  17. LIDODERM (LIDOCAINE) PATCH [Concomitant]
  18. PROTONIX (PANTOPRAZOLE SODIUM SESQUIHYDRATE) [Concomitant]
  19. ALL OTHER THERAPEUTIC PRODUCTS [Concomitant]
  20. LYRICA (PREGABALIN) [Concomitant]
  21. MORPHINE [Concomitant]
  22. POTASSIUM CHLORIDE (POTASSIUM CHLORIDE) [Concomitant]
  23. FLOMAX (TAMSULOSIN HYDROCHLORIDE) [Concomitant]
  24. REBIF (INTERFERON BETA-1A) [Concomitant]
  25. FLUOXETINE (FLUOXETINE HYDROCHLORIDE) [Concomitant]

REACTIONS (7)
  - Excoriation [None]
  - Contusion [None]
  - Pneumonia bacterial [None]
  - Sepsis syndrome [None]
  - Troponin increased [None]
  - Fall [None]
  - Nosocomial infection [None]
